FAERS Safety Report 9228767 (Version 2)
Quarter: 2013Q2

REPORT INFORMATION
  Report Type: Report from Study
  Country: GB (occurrence: GB)
  Receive Date: 20130412
  Receipt Date: 20130516
  Transmission Date: 20140414
  Serious: Yes (Hospitalization)
  Sender: FDA-Public Use
  Company Number: GB-UCBSA-082574

PATIENT
  Age: 70 Year
  Sex: Female
  Weight: 68 kg

DRUGS (1)
  1. CERTOLIZUMAB [Suspect]
     Indication: RHEUMATOID ARTHRITIS
     Route: 058
     Dates: start: 20120316

REACTIONS (2)
  - Abdominal pain lower [Recovered/Resolved]
  - Diarrhoea [Recovered/Resolved]
